FAERS Safety Report 6794988-1 (Version None)
Quarter: 2010Q2

REPORT INFORMATION
  Report Type: 
  Country: None (occurrence: None)
  Receive Date: 20100625
  Receipt Date: 20100617
  Transmission Date: 20101027
  Serious: Yes (Hospitalization)
  Sender: FDA-Public Use
  Company Number: US-BAYER-201017064BCC

PATIENT
  Age: 72 Year
  Sex: Male
  Weight: 96 kg

DRUGS (15)
  1. ASPIRIN [Suspect]
     Indication: DRUG USE FOR UNKNOWN INDICATION
     Route: 065
     Dates: end: 20100310
  2. ASPIRIN [Suspect]
     Route: 065
  3. PLAVIX [Suspect]
     Indication: DRUG USE FOR UNKNOWN INDICATION
     Route: 065
     Dates: end: 20100301
  4. COUMADIN [Suspect]
     Indication: DRUG USE FOR UNKNOWN INDICATION
     Route: 065
     Dates: end: 20100301
  5. IDRABIOTAPARINUX OR PLACEBO [Suspect]
     Indication: CEREBROVASCULAR ACCIDENT PROPHYLAXIS
     Route: 058
     Dates: start: 20091006, end: 20091228
  6. WARFARIN SODIUM [Suspect]
     Indication: CEREBROVASCULAR ACCIDENT PROPHYLAXIS
     Route: 048
     Dates: start: 20091006, end: 20091228
  7. COLCHICINE [Concomitant]
     Route: 065
  8. ALLOPURINOL [Concomitant]
     Route: 065
  9. ELAVIL [Concomitant]
     Route: 065
  10. CAPOTEN [Concomitant]
     Route: 065
  11. METOPROLOL TARTRATE [Concomitant]
     Route: 065
  12. OMEPRAZOLE [Concomitant]
     Route: 065
  13. LORTAB [Concomitant]
     Route: 065
  14. NORVASC [Concomitant]
     Route: 065
  15. ZOCOR [Concomitant]
     Route: 065

REACTIONS (6)
  - CHEST DISCOMFORT [None]
  - EROSIVE DUODENITIS [None]
  - GASTRITIS EROSIVE [None]
  - HAEMATOCHEZIA [None]
  - MELAENA [None]
  - UPPER GASTROINTESTINAL HAEMORRHAGE [None]
